FAERS Safety Report 8383397-X (Version None)
Quarter: 2012Q2

REPORT INFORMATION
  Report Type: 
  Country: None (occurrence: None)
  Receive Date: 20120524
  Receipt Date: 20120518
  Transmission Date: 20120825
  Serious: Yes (Hospitalization, Other)
  Sender: FDA-Public Use
  Company Number: US-BAYER-2011-120136

PATIENT
  Age: 36 Year
  Sex: Female
  Weight: 73 kg

DRUGS (9)
  1. FERROUS SULFATE TAB [Concomitant]
  2. MULTI-VITAMIN [Concomitant]
     Dosage: DAILY
     Route: 048
  3. ADVIL [Concomitant]
     Dosage: UNK UNK, PRN
     Route: 048
  4. YASMIN [Suspect]
     Indication: CONTRACEPTION
     Dosage: UNK
     Dates: start: 20010101, end: 20040101
  5. YAZ [Suspect]
     Indication: CONTRACEPTION
     Dosage: UNK
     Dates: end: 20040101
  6. YASMIN [Suspect]
     Indication: PREMENSTRUAL SYNDROME
  7. MAXIDONE [Concomitant]
     Dosage: 750 MG, UNK
     Route: 048
  8. YAZ [Suspect]
     Indication: PREMENSTRUAL SYNDROME
  9. ZOLOFT [Concomitant]
     Indication: DEPRESSION
     Dosage: 100 MG, DAILY
     Route: 048

REACTIONS (6)
  - PULMONARY EMBOLISM [None]
  - HABITUAL ABORTION [None]
  - PAIN [None]
  - ANXIETY [None]
  - EMOTIONAL DISORDER [None]
  - DEEP VEIN THROMBOSIS [None]
